FAERS Safety Report 15896333 (Version 1)
Quarter: 2019Q1

REPORT INFORMATION
  Report Type: Spontaneous
  Country: FR (occurrence: FR)
  Receive Date: 20190131
  Receipt Date: 20190131
  Transmission Date: 20190417
  Serious: Yes (Other)
  Sender: FDA-Public Use
  Company Number: PHHY2019FR018233

PATIENT

DRUGS (1)
  1. PAZOPANIB [Suspect]
     Active Substance: PAZOPANIB
     Indication: DERMATOFIBROSARCOMA PROTUBERANS
     Dosage: 800 MG, QD
     Route: 065

REACTIONS (1)
  - Nephrotic syndrome [Unknown]
